FAERS Safety Report 7705574-0 (Version None)
Quarter: 2011Q3

REPORT INFORMATION
  Report Type: 
  Country: None (occurrence: None)
  Receive Date: 20110824
  Receipt Date: 20110816
  Transmission Date: 20111222
  Serious: Yes (Hospitalization, Other)
  Sender: FDA-Public Use
  Company Number: US-JNJFOC-20110808779

PATIENT
  Sex: Female
  Weight: 112.49 kg

DRUGS (6)
  1. TOPAMAX [Suspect]
     Route: 048
     Dates: start: 20110516
  2. EFFEXOR [Concomitant]
     Indication: DEPRESSION
     Route: 048
  3. TOPAMAX [Suspect]
     Route: 048
     Dates: start: 20100101
  4. TOPAMAX [Suspect]
     Indication: SLEEP DISORDER
     Route: 048
     Dates: end: 20110408
  5. SEROQUEL XR [Concomitant]
     Indication: SLEEP DISORDER
     Route: 048
  6. TOPAMAX [Suspect]
     Route: 048
     Dates: start: 20110408, end: 20110516

REACTIONS (3)
  - MENTAL DISORDER [None]
  - ABNORMAL LOSS OF WEIGHT [None]
  - AGGRESSION [None]
